FAERS Safety Report 6752694-3 (Version None)
Quarter: 2010Q2

REPORT INFORMATION
  Report Type: 
  Country: None (occurrence: None)
  Receive Date: 20100601
  Receipt Date: 20100601
  Transmission Date: 20101027
  Serious: Yes (Life-Threatening, Hospitalization)
  Sender: FDA-Public Use
  Company Number: None

PATIENT
  Age: 31 Year
  Sex: Female
  Weight: 56.6996 kg

DRUGS (1)
  1. OXCARBAZEPINE [Suspect]
     Indication: SIMPLE PARTIAL SEIZURES
     Dosage: 300 MG 3X DAY PO
     Route: 048
     Dates: start: 20100506, end: 20100519

REACTIONS (2)
  - ANAPHYLACTIC REACTION [None]
  - ANGIOEDEMA [None]
